FAERS Safety Report 14416697 (Version 2)
Quarter: 2018Q1

REPORT INFORMATION
  Report Type: Spontaneous
  Country: IT (occurrence: IT)
  Receive Date: 20180122
  Receipt Date: 20180205
  Transmission Date: 20180509
  Serious: Yes (Hospitalization, Other)
  Sender: FDA-Public Use
  Company Number: IT-BRISTOL-MYERS SQUIBB COMPANY-BMS-2018-002037

PATIENT
  Age: 91 Year
  Sex: Female

DRUGS (4)
  1. SEQUACOR [Concomitant]
     Active Substance: BISOPROLOL
     Indication: HYPERTENSION
     Dosage: 5 MG, UNK
     Route: 048
  2. COVERSYL                           /00790702/ [Concomitant]
     Active Substance: PERINDOPRIL
     Indication: HYPERTENSION
     Dosage: 5 MG, UNK
     Route: 048
  3. COUMADIN [Suspect]
     Active Substance: WARFARIN SODIUM
     Indication: ATRIAL FIBRILLATION
     Route: 048
     Dates: end: 20180103
  4. DIURESIX                           /01036501/ [Concomitant]
     Active Substance: TORSEMIDE
     Indication: DIURETIC THERAPY
     Dosage: 10 MG, UNK
     Route: 048

REACTIONS (2)
  - Subarachnoid haemorrhage [Not Recovered/Not Resolved]
  - Brain contusion [Not Recovered/Not Resolved]

NARRATIVE: CASE EVENT DATE: 20180104
